FAERS Safety Report 5367249-5 (Version None)
Quarter: 2007Q2

REPORT INFORMATION
  Report Type: 
  Country: None (occurrence: None)
  Receive Date: 20070620
  Receipt Date: 20070620
  Transmission Date: 20071010
  Serious: Yes (Hospitalization, Other)
  Sender: FDA-Public Use
  Company Number: None

PATIENT
  Sex: Male
  Weight: 40.8237 kg

DRUGS (1)
  1. CITANEST [Suspect]
     Indication: TOOTH EXTRACTION
     Dosage: ~0.2% INFILTRATION AROUND TOOTH ^H^
     Dates: start: 20070228

REACTIONS (2)
  - POST PROCEDURAL COMPLICATION [None]
  - SWELLING FACE [None]
